FAERS Safety Report 8285689 (Version 2)
Quarter: 2014Q2

REPORT INFORMATION
  Report Type: Spontaneous
  Country: CA (occurrence: None)
  Receive Date: 20111206
  Receipt Date: 20140430
  Transmission Date: 20141212
  Serious: Yes (Hospitalization)
  Sender: FDA-Public Use
  Company Number: AUR-APL-2011-05974

PATIENT
  Age: 14 Month
  Sex: Male

DRUGS (1)
  1. DONEPEZIL HYDROCHLORIDE [Suspect]
     Indication: PRODUCT USED FOR UNKNOWN INDICATION
     Dosage: (1 DOSAGE FORMS),ORAL
     Route: 048

REACTIONS (11)
  - Mental status changes [None]
  - Accidental exposure to product by child [None]
  - Somnolence [None]
  - Vomiting [None]
  - Diarrhoea [None]
  - Blood pressure decreased [None]
  - Heart rate increased [None]
  - Respiratory rate increased [None]
  - Drooling [None]
  - Agitation [None]
  - Bradycardia [None]
